FAERS Safety Report 18112119 (Version 1)
Quarter: 2020Q3

REPORT INFORMATION
  Report Type: Spontaneous
  Country: US (occurrence: US)
  Receive Date: 20200805
  Receipt Date: 20200805
  Transmission Date: 20201103
  Serious: Yes (Death, Other)
  Sender: FDA-Public Use
  Company Number: US-AUROBINDO-AUR-APL-2017-44222

PATIENT
  Age: 61 Year
  Sex: Male

DRUGS (6)
  1. EPTIFIBATIDE. [Suspect]
     Active Substance: EPTIFIBATIDE
     Indication: PRODUCT USED FOR UNKNOWN INDICATION
     Dosage: 180 MICROGRAM/KILOGRAM
     Route: 040
  2. ASPIRIN. [Suspect]
     Active Substance: ASPIRIN
     Indication: PRODUCT USED FOR UNKNOWN INDICATION
     Dosage: 325 MILLIGRAM
     Route: 065
  3. BIVALIRUDIN INJECTION [Suspect]
     Active Substance: BIVALIRUDIN
     Dosage: 1.75 MILLIGRAM/KILOGRAM, EVERY HOUR
     Route: 042
  4. AMIODARONE [Suspect]
     Active Substance: AMIODARONE
     Indication: PRODUCT USED FOR UNKNOWN INDICATION
     Dosage: 1 MILLIGRAM  (PER MINUTE)
     Route: 042
  5. AMIODARONE HYDROCHLORIDE. [Suspect]
     Active Substance: AMIODARONE HYDROCHLORIDE
     Indication: PRODUCT USED FOR UNKNOWN INDICATION
     Dosage: 150 MILLIGRAM (LOADING DOSE)
     Route: 042
  6. BIVALIRUDIN INJECTION [Suspect]
     Active Substance: BIVALIRUDIN
     Indication: PRODUCT USED FOR UNKNOWN INDICATION
     Dosage: 0.75 MILLIGRAM/KILOGRAM
     Route: 040

REACTIONS (6)
  - Pulmonary alveolar haemorrhage [Fatal]
  - Tachypnoea [Fatal]
  - Hypotension [Fatal]
  - Oxygen saturation abnormal [Fatal]
  - Condition aggravated [Fatal]
  - Tachycardia [Fatal]
